FAERS Safety Report 9159274 (Version 1)
Quarter: 2013Q1

REPORT INFORMATION
  Report Type: Spontaneous
  Country: US (occurrence: None)
  Receive Date: 20130212
  Receipt Date: 20130212
  Transmission Date: 20140127
  Serious: Yes (Other)
  Sender: FDA-Public Use
  Company Number: 001477660A

PATIENT
  Age: 35 Year
  Sex: Female

DRUGS (6)
  1. PROACTIV RENEWING CLEANSER [Suspect]
     Indication: ACNE
     Route: 023
     Dates: start: 201206, end: 20121222
  2. PROACTIV RENEWING CLEANSER [Suspect]
     Indication: ACNE
     Route: 023
     Dates: start: 201206, end: 20121222
  3. PROACTIV RENEWING CLEANSER [Suspect]
     Route: 023
     Dates: start: 201206, end: 20121222
  4. PROACTIV REPAIRING TREATMENT [Suspect]
  5. PROACTIV REFINING MASK [Suspect]
  6. VITA CLEAR VITAMINS [Concomitant]

REACTIONS (3)
  - Erythema [None]
  - Rash [None]
  - Swelling face [None]
